FAERS Safety Report 6413323-1 (Version None)
Quarter: 2009Q4

REPORT INFORMATION
  Report Type: 
  Country: None (occurrence: None)
  Receive Date: 20091026
  Receipt Date: 20091013
  Transmission Date: 20100525
  Serious: Yes (Other)
  Sender: FDA-Public Use
  Company Number: PL-ROCHE-662842

PATIENT
  Sex: Female
  Weight: 71 kg

DRUGS (8)
  1. XELODA [Suspect]
     Indication: BREAST CANCER
     Dosage: DOSE REPORTED AS 4300
     Route: 048
     Dates: start: 20071221
  2. XELODA [Suspect]
     Dosage: CYCLE 13: 75% OF STANDARD DOSE.
     Route: 048
  3. XELODA [Suspect]
     Dosage: CYCLE 16: 50 % OF STANDARD DOSE
     Route: 048
  4. XELODA [Suspect]
     Dosage: CYCLE 18 AND 19: 75 % OF STANDARD DOSE.
     Route: 048
  5. XELODA [Suspect]
     Route: 048
     Dates: end: 20090817
  6. DURAGESIC-100 [Concomitant]
     Indication: BREAST CANCER
     Dosage: DOSE: 50MG/H EVERY 3 DAYS ROUTE - PERCUTANEOUS
     Route: 050
     Dates: start: 20080826
  7. PAMIDRONATE DISODIUM [Concomitant]
     Route: 042
     Dates: start: 20080415
  8. OXODIL [Concomitant]
     Indication: PLEURAL EFFUSION
     Route: 055
     Dates: start: 20071215

REACTIONS (14)
  - ANAEMIA [None]
  - DIARRHOEA [None]
  - HAEMATOTOXICITY [None]
  - HYPERURICAEMIA [None]
  - MALAISE [None]
  - METASTASES TO BONE [None]
  - NAUSEA [None]
  - PALMAR-PLANTAR ERYTHRODYSAESTHESIA SYNDROME [None]
  - PETECHIAE [None]
  - PLEURAL EFFUSION [None]
  - PULMONARY FIBROSIS [None]
  - THROMBOCYTOPENIA [None]
  - VOMITING [None]
  - WEIGHT INCREASED [None]
